FAERS Safety Report 24952797 (Version 2)
Quarter: 2025Q1

REPORT INFORMATION
  Report Type: Report from Study
  Country: US (occurrence: US)
  Receive Date: 20250211
  Receipt Date: 20250217
  Transmission Date: 20250408
  Serious: Yes (Other)
  Sender: ROCHE
  Company Number: US-ROCHE-10000201253

PATIENT
  Age: 41 Year
  Sex: Female
  Weight: 124.28 kg

DRUGS (2)
  1. OCREVUS [Suspect]
     Active Substance: OCRELIZUMAB
     Indication: Relapsing-remitting multiple sclerosis
     Route: 040
     Dates: start: 2018, end: 20240215
  2. OCREVUS [Suspect]
     Active Substance: OCRELIZUMAB
     Indication: Myalgia

REACTIONS (4)
  - Respiratory syncytial virus test positive [Recovered/Resolved]
  - Feeding disorder [Recovered/Resolved]
  - Multiple sclerosis relapse [Not Recovered/Not Resolved]
  - Cholelithiasis [Recovered/Resolved]

NARRATIVE: CASE EVENT DATE: 20241031
